FAERS Safety Report 7801740-4 (Version None)
Quarter: 2011Q4

REPORT INFORMATION
  Report Type: 
  Country: None (occurrence: None)
  Receive Date: 20111007
  Receipt Date: 20111003
  Transmission Date: 20120403
  Serious: Yes (Death)
  Sender: FDA-Public Use
  Company Number: JP-SANOFI-AVENTIS-2011SA044919

PATIENT
  Age: 74 Year
  Sex: Male
  Weight: 86 kg

DRUGS (14)
  1. LANTUS [Concomitant]
     Indication: DIABETES MELLITUS
     Route: 058
  2. INSULIN GLULISINE [Suspect]
     Indication: DIABETES MELLITUS
     Dosage: 17-17-12 UNITS/DAY
     Route: 058
     Dates: start: 20100707
  3. SIMVASTATIN [Concomitant]
     Route: 048
  4. AMLODIPINE [Concomitant]
     Route: 048
  5. NITRAZEPAM [Concomitant]
     Route: 048
  6. NOVORAPID [Concomitant]
     Dosage: DOSE: 17 UNITS IN THE MORNING, 17 UNITS IN THE DAY TIME AND 12 UNITS IN THE EVENING.
     Dates: end: 20100706
  7. DIOVAN [Concomitant]
     Route: 048
  8. URINORM [Concomitant]
     Route: 048
  9. ISOSORBIDE MONONITRATE [Concomitant]
     Route: 048
  10. ALLOPURINOL [Concomitant]
     Route: 048
  11. FAMOTIDINE [Concomitant]
     Route: 048
  12. CONIEL [Concomitant]
     Route: 048
  13. ENALAPRIL MALEATE [Concomitant]
     Route: 048
  14. ASPIRIN [Concomitant]
     Route: 048

REACTIONS (3)
  - DEATH [None]
  - BLOOD CREATININE INCREASED [None]
  - BLOOD UREA INCREASED [None]
